FAERS Safety Report 4934890-0 (Version None)
Quarter: 2006Q1

REPORT INFORMATION
  Report Type: 
  Country: None (occurrence: None)
  Receive Date: 20060302
  Receipt Date: 20060215
  Transmission Date: 20060701
  Serious: Yes (Hospitalization)
  Sender: FDA-Public Use
  Company Number: 2006-0009243

PATIENT
  Age: 23 Year
  Sex: Male
  Weight: 45.5865 kg

DRUGS (9)
  1. TRUVADA [Suspect]
     Indication: HIV INFECTION
     Dosage: 1 DOSAGE FORMS, 1 IN 1 D, ORAL
     Route: 048
     Dates: start: 20060104, end: 20060214
  2. REYATAX (ATAZANAVIR SULFATE) [Suspect]
     Indication: HIV INFECTION
     Dosage: 300 MG, 1 IN 1 D, ORAL
     Route: 048
     Dates: start: 20060104, end: 20060214
  3. NORVIR [Suspect]
     Indication: HIV INFECTION
     Dosage: 100 MG , 1 IN 1 D, ORAL
     Route: 048
     Dates: start: 20060104, end: 20060214
  4. DAPSONE [Concomitant]
  5. CLINDAMYCIN [Concomitant]
  6. LEUCOVORIN (FOLINIC ACID/00566701/) [Concomitant]
  7. PYRIMETHAMINE TAB [Concomitant]
  8. ZITHROMAX [Concomitant]
  9. COMPAZINE [Concomitant]

REACTIONS (3)
  - DEHYDRATION [None]
  - TOXOPLASMOSIS [None]
  - VOMITING [None]
